FAERS Safety Report 11779251 (Version 1)
Quarter: 2015Q4

REPORT INFORMATION
  Report Type: Spontaneous
  Country: US (occurrence: US)
  Receive Date: 20151125
  Receipt Date: 20151125
  Transmission Date: 20160304
  Serious: No
  Sender: FDA-Public Use
  Company Number: US-PFIZER INC-2015399561

PATIENT
  Age: 74 Year
  Sex: Male

DRUGS (1)
  1. XANAX [Suspect]
     Active Substance: ALPRAZOLAM
     Indication: STRESS
     Dosage: 0.25 MG, UNK (3 TO 4 TIMES A DAY)

REACTIONS (3)
  - Mood altered [Unknown]
  - Anger [Unknown]
  - Therapeutic response unexpected [Unknown]
